FAERS Safety Report 8558554 (Version 5)
Quarter: 2014Q1

REPORT INFORMATION
  Report Type: Report from Study
  Country: AU (occurrence: AU)
  Receive Date: 20120511
  Receipt Date: 20140319
  Transmission Date: 20141002
  Serious: Yes (Other)
  Sender: FDA-Public Use
  Company Number: AU-ROCHE-1067412

PATIENT
  Age: 70 Year
  Sex: Male

DRUGS (10)
  1. ACTEMRA [Suspect]
     Indication: RHEUMATOID ARTHRITIS
     Dosage: 34 ML
     Route: 042
     Dates: start: 20111121
  2. WARFARIN [Concomitant]
     Route: 048
  3. WARFARIN [Concomitant]
     Route: 065
  4. WARFARIN [Concomitant]
     Dosage: 3/4/3 MG, ALTERNATE DAILY, STARTED 8 YEARS AGO, ONGOING
     Route: 048
  5. NEXIUM [Concomitant]
     Dosage: STARTED 2-3 YEARS AGO, ONGOING
     Route: 048
  6. NORVASC [Concomitant]
     Route: 065
  7. PREDNISOLONE [Concomitant]
     Indication: PAIN
     Dosage: STARTED 17 YEARS AGO, IS ONGOING
     Route: 048
  8. PREDNISOLONE [Concomitant]
     Indication: SWELLING
     Route: 065
  9. PREDNISOLONE [Concomitant]
     Route: 065
  10. PREDNISOLONE [Concomitant]
     Route: 065

REACTIONS (8)
  - Arthralgia [Not Recovered/Not Resolved]
  - Joint swelling [Not Recovered/Not Resolved]
  - Arthralgia [Recovered/Resolved]
  - Arthralgia [Recovered/Resolved]
  - Pain in extremity [Recovering/Resolving]
  - Trismus [Unknown]
  - Local swelling [Recovering/Resolving]
  - Nausea [Unknown]
